FAERS Safety Report 18405324 (Version 1)
Quarter: 2020Q4

REPORT INFORMATION
  Report Type: Spontaneous
  Country: US (occurrence: US)
  Receive Date: 20201020
  Receipt Date: 20201020
  Transmission Date: 20210114
  Serious: Yes (Hospitalization)
  Sender: FDA-Public Use
  Company Number: None

PATIENT
  Age: 18 Year
  Sex: Female
  Weight: 51.1 kg

DRUGS (2)
  1. ACTEMRA PEN 162MG/0.9ML [Concomitant]
     Dates: start: 20201018, end: 20201018
  2. TOCILIZUMAB. [Suspect]
     Active Substance: TOCILIZUMAB
     Indication: JUVENILE IDIOPATHIC ARTHRITIS
     Route: 058
     Dates: start: 20201018, end: 20201018

REACTIONS (2)
  - Injection site hypoaesthesia [None]
  - Chest pain [None]

NARRATIVE: CASE EVENT DATE: 20201018
